FAERS Safety Report 15856747 (Version 1)
Quarter: 2019Q1

REPORT INFORMATION
  Report Type: Spontaneous
  Country: BR (occurrence: BR)
  Receive Date: 20190123
  Receipt Date: 20190123
  Transmission Date: 20190417
  Serious: Yes (Other)
  Sender: FDA-Public Use
  Company Number: BR-TEVA-2019-BR-1001066

PATIENT
  Age: 68 Year
  Sex: Male

DRUGS (2)
  1. BEVACIZUMABE [Concomitant]
     Dates: start: 20181210
  2. TEVAOXALI [Suspect]
     Active Substance: OXALIPLATIN
     Route: 042

REACTIONS (4)
  - Malaise [Recovered/Resolved]
  - Throat irritation [Recovered/Resolved]
  - Flushing [Recovered/Resolved]
  - Abdominal pain [Recovered/Resolved]

NARRATIVE: CASE EVENT DATE: 20190109
